FAERS Safety Report 6769078-4 (Version None)
Quarter: 2010Q2

REPORT INFORMATION
  Report Type: 
  Country: None (occurrence: None)
  Receive Date: 20100607
  Receipt Date: 20100601
  Transmission Date: 20101027
  Serious: Yes (Death, Other)
  Sender: FDA-Public Use
  Company Number: THYM-1001297

PATIENT
  Age: 58 Year
  Sex: Female
  Weight: 55 kg

DRUGS (6)
  1. THYMOGLOBULIN [Suspect]
     Indication: BONE MARROW CONDITIONING REGIMEN
     Dosage: 70 MG, QD, INTRAVENOUS
     Route: 042
     Dates: start: 20090529, end: 20090531
  2. FLUDARABINE PHOSPHATE [Concomitant]
  3. BUSULFAN [Concomitant]
  4. ITRAXONAZOLE [Concomitant]
  5. VALACYCLOVIR [Concomitant]
  6. ENTECAVIR [Concomitant]

REACTIONS (4)
  - ACUTE GRAFT VERSUS HOST DISEASE [None]
  - CONVULSION [None]
  - ENCEPHALITIS HERPES [None]
  - ENCEPHALOPATHY [None]
